FAERS Safety Report 14416918 (Version 2)
Quarter: 2018Q1

REPORT INFORMATION
  Report Type: Spontaneous
  Country: US (occurrence: US)
  Receive Date: 20180122
  Receipt Date: 20180219
  Transmission Date: 20180509
  Serious: No
  Sender: FDA-Public Use
  Company Number: US-PFIZER INC-2018024361

PATIENT
  Sex: Female

DRUGS (3)
  1. ADVIL SINUS CONGESTION AND PAIN [Suspect]
     Active Substance: IBUPROFEN\PHENYLEPHRINE HYDROCHLORIDE
     Indication: SINUS DISORDER
     Dosage: UNK, EVERY 4 HRS
     Dates: start: 20180114
  2. ADVIL SINUS CONGESTION AND PAIN [Suspect]
     Active Substance: IBUPROFEN\PHENYLEPHRINE HYDROCHLORIDE
     Indication: NASAL CONGESTION
     Dosage: LAST TIME I TOOK IT WAS LAST NIGHT AND I WENT TO 8 HOURS I DIDN^T TAKE IT AGAIN UNTIL ABOUT 11
     Dates: start: 20180115
  3. ADVIL SINUS CONGESTION AND PAIN [Suspect]
     Active Substance: IBUPROFEN\PHENYLEPHRINE HYDROCHLORIDE
     Indication: PARANASAL SINUS DISCOMFORT
     Dosage: WENT TO 8 HOURS I DIDN^T TAKE IT AGAIN UNTIL ABOUT 11
     Dates: start: 20180116

REACTIONS (6)
  - Influenza like illness [Unknown]
  - Fatigue [Unknown]
  - Arthralgia [Unknown]
  - Somnolence [Unknown]
  - Anaemia [Unknown]
  - Loss of personal independence in daily activities [Unknown]
